FAERS Safety Report 12434658 (Version 2)
Quarter: 2017Q1

REPORT INFORMATION
  Report Type: Spontaneous
  Country: US (occurrence: US)
  Receive Date: 20160603
  Receipt Date: 20170103
  Transmission Date: 20170428
  Serious: No
  Sender: FDA-Public Use
  Company Number: US-CELGENEUS-USA-2016060536

PATIENT
  Age: 59 Year
  Sex: Female

DRUGS (4)
  1. OTEZLA [Suspect]
     Active Substance: APREMILAST
     Indication: PSORIATIC ARTHROPATHY
     Dosage: 60 MILLIGRAM
     Route: 048
     Dates: start: 20150505
  2. OTEZLA [Suspect]
     Active Substance: APREMILAST
     Dosage: 30 MILLIGRAM
     Route: 048
     Dates: start: 20160509, end: 20160523
  3. COAL TAR SHAMPOO [Concomitant]
     Active Substance: COAL TAR
     Indication: PSORIASIS
     Route: 065
     Dates: start: 201601
  4. CLOBETASOL [Concomitant]
     Active Substance: CLOBETASOL
     Indication: PSORIASIS
     Route: 065
     Dates: start: 201601

REACTIONS (6)
  - Upper respiratory tract infection [Unknown]
  - Sinus disorder [Not Recovered/Not Resolved]
  - Upper-airway cough syndrome [Recovered/Resolved]
  - Depressed mood [Recovered/Resolved]
  - Nasal congestion [Not Recovered/Not Resolved]
  - Throat irritation [Recovered/Resolved]

NARRATIVE: CASE EVENT DATE: 20160501
